FAERS Safety Report 10776065 (Version 1)
Quarter: 2015Q1

REPORT INFORMATION
  Report Type: Spontaneous
  Country: US (occurrence: None)
  Receive Date: 20150205
  Receipt Date: 20150205
  Transmission Date: 20150721
  Serious: Yes (Disabling, Other)
  Sender: FDA-Public Use
  Company Number: None

PATIENT
  Age: 29 Year
  Sex: Female
  Weight: 48.54 kg

DRUGS (1)
  1. LEVAQUIN [Suspect]
     Active Substance: LEVOFLOXACIN
     Indication: SINUSITIS
     Route: 048
     Dates: start: 20150130, end: 20150131

REACTIONS (7)
  - Nausea [None]
  - Dizziness [None]
  - Seizure [None]
  - Malaise [None]
  - Dyspnoea [None]
  - Sleep terror [None]
  - Headache [None]

NARRATIVE: CASE EVENT DATE: 20150131
